FAERS Safety Report 10599047 (Version 1)
Quarter: 2014Q4

REPORT INFORMATION
  Report Type: Spontaneous
  Country: CN (occurrence: CN)
  Receive Date: 20141121
  Receipt Date: 20141121
  Transmission Date: 20150529
  Serious: Yes (Other)
  Sender: FDA-Public Use
  Company Number: PHHY2014CN147741

PATIENT
  Sex: Male

DRUGS (11)
  1. SEMUSTINE [Concomitant]
     Active Substance: SEMUSTINE
     Indication: PROPHYLAXIS
     Dosage: 250 MG/M2, FOR 1 DAY
     Route: 048
  2. MYCOPHENOLATE MOFETIL. [Concomitant]
     Active Substance: MYCOPHENOLATE MOFETIL
     Indication: PROPHYLAXIS AGAINST GRAFT VERSUS HOST DISEASE
     Dosage: 0.5 G, BID, AT 7TH DAY AFTER TRANSPLANTATION
     Route: 048
  3. METHYLPREDNISOLONE. [Suspect]
     Active Substance: METHYLPREDNISOLONE
     Indication: PROPHYLAXIS AGAINST GRAFT VERSUS HOST DISEASE
     Route: 065
  4. METHOTREXATE [Suspect]
     Active Substance: METHOTREXATE
     Indication: PROPHYLAXIS AGAINST GRAFT VERSUS HOST DISEASE
     Dosage: 15 MG/M2, AT 1ST DAY
     Route: 048
  5. METHOTREXATE [Suspect]
     Active Substance: METHOTREXATE
     Dosage: 10 MG/M2, AT 3RD, 6TH, 11TH DAYS AFTER TRANSPLANTION
     Route: 048
  6. CICLOSPORIN [Suspect]
     Active Substance: CYCLOSPORINE
     Indication: PROPHYLAXIS AGAINST GRAFT VERSUS HOST DISEASE
     Route: 048
  7. HYDROXYUREA. [Concomitant]
     Active Substance: HYDROXYUREA
     Indication: PROPHYLAXIS
     Dosage: 40 MG/KG, BID, FOR 1 DAY
     Route: 048
  8. ARA-C [Concomitant]
     Active Substance: CYTARABINE
     Indication: PROPHYLAXIS
     Dosage: 2 G/M2, FOR 1 DAY
     Route: 065
  9. CYCLOPHOSPHAMIDE. [Concomitant]
     Active Substance: CYCLOPHOSPHAMIDE
     Indication: PROPHYLAXIS
     Dosage: 1.8 G/M2, FOR 2 DAYS
     Route: 065
  10. MYLERAN [Concomitant]
     Active Substance: BUSULFAN
     Indication: PROPHYLAXIS
     Dosage: 0.8 MG/KG, UNK
     Route: 042
  11. MYLERAN [Concomitant]
     Active Substance: BUSULFAN
     Dosage: 1 MG/KG, PRIOR TO 2006, EVERY 6 H FOR 3 DAYS
     Route: 048

REACTIONS (2)
  - Generalised tonic-clonic seizure [Unknown]
  - Neurotoxicity [Unknown]
